FAERS Safety Report 4469146-6 (Version None)
Quarter: 2004Q4

REPORT INFORMATION
  Report Type: 
  Country: None (occurrence: None)
  Receive Date: 20041008
  Receipt Date: 20030826
  Transmission Date: 20050328
  Serious: Yes (Hospitalization)
  Sender: FDA-Public Use
  Company Number: BE-BRISTOL-MYERS SQUIBB COMPANY-12366720

PATIENT
  Age: 34 Year
  Sex: Female

DRUGS (4)
  1. ATAZANAVIR [Suspect]
     Indication: HIV INFECTION
     Route: 048
     Dates: start: 20010109
  2. STAVUDINE [Suspect]
     Indication: HIV INFECTION
     Dates: start: 20010109, end: 20030821
  3. DIDANOSINE [Concomitant]
     Indication: HIV INFECTION
     Dates: start: 20010109
  4. FLUCONAZOLE [Concomitant]
     Dates: start: 20000101

REACTIONS (7)
  - GASTRITIS [None]
  - GENERAL PHYSICAL HEALTH DETERIORATION [None]
  - HEADACHE [None]
  - MITOCHONDRIAL TOXICITY [None]
  - NAUSEA [None]
  - VERTIGO [None]
  - WEIGHT DECREASED [None]
